FAERS Safety Report 7002212-X (Version None)
Quarter: 2010Q3

REPORT INFORMATION
  Report Type: 
  Country: None (occurrence: None)
  Receive Date: 20100920
  Receipt Date: 20100301
  Transmission Date: 20110219
  Serious: Yes (Other)
  Sender: FDA-Public Use
  Company Number: US-ASTRAZENECA-2009UW20963

PATIENT
  Sex: Male
  Weight: 88 kg

DRUGS (4)
  1. SEROQUEL [Suspect]
     Dosage: 50 MG - 100 MG
     Route: 048
     Dates: start: 20060816
  2. VIAGRA [Concomitant]
     Indication: ERECTILE DYSFUNCTION
     Dosage: 50 MG PRN
     Dates: start: 20060131
  3. LISINOPRIL [Concomitant]
     Indication: HYPERTENSION
     Dates: start: 20050406
  4. LOVASTATIN [Concomitant]
     Indication: HYPERLIPIDAEMIA
     Dates: start: 20060131

REACTIONS (3)
  - DIABETES MELLITUS [None]
  - KETOACIDOSIS [None]
  - PANCREATITIS [None]
